FAERS Safety Report 8800435 (Version 1)
Quarter: 2012Q4

REPORT INFORMATION
  Report Type: 
  Country: US (occurrence: US)
  Receive Date: 20120921
  Receipt Date: 20120921
  Transmission Date: 20130627
  Serious: Yes (Death)
  Sender: FDA-Public Use
  Company Number: US-ROCHE-1125689

PATIENT
  Sex: Female

DRUGS (10)
  1. AVASTIN [Suspect]
     Indication: BREAST CANCER FEMALE
     Route: 065
  2. XELODA [Suspect]
     Indication: PRODUCT USED FOR UNKNOWN INDICATION
     Route: 065
  3. CYTOXAN [Concomitant]
  4. METHOTREXATE [Concomitant]
  5. 5-FU [Concomitant]
  6. TAMOXIFEN [Concomitant]
  7. ADRIAMYCIN [Concomitant]
  8. TAXOTERE [Concomitant]
  9. ARIMIDEX [Concomitant]
  10. TAXOL [Concomitant]

REACTIONS (1)
  - Death [Fatal]
